FAERS Safety Report 5110233-7 (Version None)
Quarter: 2006Q3

REPORT INFORMATION
  Report Type: 
  Country: None (occurrence: None)
  Receive Date: 20060921
  Receipt Date: 20060907
  Transmission Date: 20061208
  Serious: Yes (Hospitalization)
  Sender: FDA-Public Use
  Company Number: SE-ROCHE-462168

PATIENT
  Age: 4 Year
  Sex: Female

DRUGS (1)
  1. ROCEPHALIN [Suspect]
     Indication: BORRELIA INFECTION
     Dosage: DOSAGE REGIMEN REPORTED AS 1.3 GMD.
     Route: 065
     Dates: start: 20060822, end: 20060830

REACTIONS (2)
  - PYREXIA [None]
  - URTICARIA [None]
